FAERS Safety Report 23602700 (Version 1)
Quarter: 2024Q1

REPORT INFORMATION
  Report Type: Spontaneous
  Country: CN (occurrence: CN)
  Receive Date: 20240306
  Receipt Date: 20240306
  Transmission Date: 20240409
  Serious: Yes (Hospitalization)
  Sender: FDA-Public Use
  Company Number: CN-Eisai-EC-2024-160695

PATIENT
  Age: 53 Year
  Sex: Female
  Weight: 50 kg

DRUGS (3)
  1. HALAVEN [Suspect]
     Active Substance: ERIBULIN MESYLATE
     Indication: Breast cancer
     Route: 042
     Dates: start: 20240126
  2. CAMRELIZUMAB [Concomitant]
     Active Substance: CAMRELIZUMAB
     Indication: Breast cancer
     Route: 041
     Dates: start: 20240125
  3. APATINIB [Concomitant]
     Active Substance: APATINIB
     Indication: Breast cancer
     Route: 048
     Dates: start: 202401

REACTIONS (5)
  - Temperature intolerance [Recovering/Resolving]
  - Cough [Recovering/Resolving]
  - Productive cough [Recovering/Resolving]
  - Pyrexia [Recovering/Resolving]
  - Myelosuppression [Recovering/Resolving]

NARRATIVE: CASE EVENT DATE: 20240204
